FAERS Safety Report 4437233-4 (Version None)
Quarter: 2004Q3

REPORT INFORMATION
  Report Type: 
  Country: None (occurrence: None)
  Receive Date: 20040726
  Receipt Date: 20040303
  Transmission Date: 20050211
  Serious: No
  Sender: FDA-Public Use
  Company Number: USA040360804

PATIENT
  Age: 83 Year
  Sex: Female
  Weight: 73 kg

DRUGS (3)
  1. FORTEO [Suspect]
     Indication: OSTEOPOROSIS
     Dosage: 20 UG/L DAY
     Dates: start: 20040225
  2. DIURETIC [Concomitant]
  3. LORTAB [Concomitant]

REACTIONS (2)
  - INJECTION SITE STINGING [None]
  - MUSCLE CRAMP [None]
